FAERS Safety Report 25246784 (Version 1)
Quarter: 2025Q2

REPORT INFORMATION
  Report Type: Report from Study
  Country: DE (occurrence: DE)
  Receive Date: 20250428
  Receipt Date: 20250428
  Transmission Date: 20250717
  Serious: Yes (Hospitalization)
  Sender: PFIZER
  Company Number: DE-ABBVIE-5941311

PATIENT
  Age: 64 Year
  Sex: Female

DRUGS (4)
  1. METHOTREXATE SODIUM [Suspect]
     Active Substance: METHOTREXATE SODIUM
     Dosage: 10 MG, WEEKLY
  2. METHOTREXATE SODIUM [Suspect]
     Active Substance: METHOTREXATE SODIUM
  3. METHOTREXATE SODIUM [Suspect]
     Active Substance: METHOTREXATE SODIUM
  4. RINVOQ [Suspect]
     Active Substance: UPADACITINIB
     Indication: Rheumatoid arthritis
     Dosage: 15 MG, 1X/DAY
     Route: 048
     Dates: start: 202006

REACTIONS (4)
  - Metatarsalgia [Recovered/Resolved]
  - Headache [Recovered/Resolved]
  - Foot deformity [Recovered/Resolved]
  - Paraesthesia [Recovered/Resolved]

NARRATIVE: CASE EVENT DATE: 20240101
